FAERS Safety Report 9754301 (Version 4)
Quarter: 2014Q1

REPORT INFORMATION
  Report Type: Spontaneous
  Country: JP (occurrence: JP)
  Receive Date: 20131213
  Receipt Date: 20140124
  Transmission Date: 20141002
  Serious: Yes (Other)
  Sender: FDA-Public Use
  Company Number: JP-BRISTOL-MYERS SQUIBB COMPANY-19903244

PATIENT
  Age: 71 Year
  Sex: Female

DRUGS (3)
  1. ERBITUX SOLN FOR INF 5MG/ML [Suspect]
     Indication: SQUAMOUS CELL CARCINOMA OF HEAD AND NECK
     Dosage: 14AUG13:590MG/M2?21AUG13-28AUG13(7D):374MG/M2?4SEP13-18SEP13(14D):370MG/M2
     Route: 041
     Dates: start: 20130814, end: 20130918
  2. DOCETAXEL [Concomitant]
     Indication: SQUAMOUS CELL CARCINOMA OF HEAD AND NECK
     Dosage: 04SEP13-04SEP13:89MG/M2
     Route: 041
     Dates: start: 20130814, end: 20130904
  3. CISPLATIN FOR INJ [Concomitant]
     Indication: SQUAMOUS CELL CARCINOMA OF HEAD AND NECK
     Dosage: 04SEP13-04SEP13:89MG/M2
     Route: 041
     Dates: start: 20130814, end: 20130904

REACTIONS (12)
  - Convulsion [Unknown]
  - Febrile neutropenia [Recovered/Resolved]
  - Hiccups [Unknown]
  - Hypertension [Unknown]
  - Alopecia [Unknown]
  - Constipation [Unknown]
  - Stomatitis [Unknown]
  - Dermatitis acneiform [Unknown]
  - Skin reaction [Unknown]
  - Decreased appetite [Unknown]
  - Hypersensitivity [Unknown]
  - Skin fissures [Unknown]
